FAERS Safety Report 7524990-3 (Version None)
Quarter: 2011Q2

REPORT INFORMATION
  Report Type: 
  Country: None (occurrence: None)
  Receive Date: 20110526
  Receipt Date: 20110511
  Transmission Date: 20111010
  Serious: Yes (Other)
  Sender: FDA-Public Use
  Company Number: AUR-APU-2011-01638

PATIENT
  Age: 58 Year
  Sex: Female

DRUGS (4)
  1. TERBINAFINE HCL [Suspect]
     Indication: FUNGAL INFECTION
     Dosage: 1 TABLET, DAILY
     Dates: start: 20110418, end: 20110428
  2. SINGULAIR [Concomitant]
  3. ESTRADIOL [Concomitant]
  4. LISINOPRIL [Concomitant]

REACTIONS (11)
  - ASTHENIA [None]
  - WEIGHT DECREASED [None]
  - APHAGIA [None]
  - ABASIA [None]
  - DIARRHOEA [None]
  - BLOOD PRESSURE DECREASED [None]
  - SYNCOPE [None]
  - DYSGEUSIA [None]
  - DIZZINESS [None]
  - VITREOUS DETACHMENT [None]
  - IMPAIRED WORK ABILITY [None]
